FAERS Safety Report 14586819 (Version 2)
Quarter: 2018Q3

REPORT INFORMATION
  Report Type: Spontaneous
  Country: US (occurrence: US)
  Receive Date: 20180301
  Receipt Date: 20180907
  Transmission Date: 20181010
  Serious: Yes (Other)
  Sender: FDA-Public Use
  Company Number: US-PFIZER INC-2018085158

PATIENT
  Age: 56 Year
  Sex: Female

DRUGS (1)
  1. PRISTIQ EXTENDED?RELEASE [Suspect]
     Active Substance: DESVENLAFAXINE SUCCINATE
     Dosage: 100 MG, UNK
     Dates: start: 20180606

REACTIONS (3)
  - Alcohol use [Unknown]
  - Withdrawal syndrome [Unknown]
  - Suicidal ideation [Unknown]
